FAERS Safety Report 13597786 (Version 3)
Quarter: 2017Q3

REPORT INFORMATION
  Report Type: Spontaneous
  Country: JP (occurrence: JP)
  Receive Date: 20170531
  Receipt Date: 20170705
  Transmission Date: 20171127
  Serious: Yes (Hospitalization)
  Sender: FDA-Public Use
  Company Number: JP-PFIZER INC-2017230473

PATIENT
  Age: 8 Year
  Sex: Female

DRUGS (2)
  1. ETHOSUXIMIDE. [Suspect]
     Active Substance: ETHOSUXIMIDE
  2. VALPROIC ACID. [Suspect]
     Active Substance: VALPROIC ACID

REACTIONS (2)
  - Scleroderma [Recovering/Resolving]
  - Systemic lupus erythematosus [Recovering/Resolving]
